FAERS Safety Report 8426670-9 (Version None)
Quarter: 2012Q2

REPORT INFORMATION
  Report Type: 
  Country: None (occurrence: None)
  Receive Date: 20120531
  Receipt Date: 20120516
  Transmission Date: 20120825
  Serious: Yes (Other)
  Sender: FDA-Public Use
  Company Number: US-1192299

PATIENT

DRUGS (2)
  1. ADALIMUMAB [Concomitant]
  2. DUREZOL [Suspect]
     Indication: UVEITIS
     Dosage: (OPHTHALMIC)
     Route: 047

REACTIONS (2)
  - INTRAOCULAR PRESSURE INCREASED [None]
  - CATARACT [None]
